FAERS Safety Report 6358184-4 (Version None)
Quarter: 2009Q3

REPORT INFORMATION
  Report Type: 
  Country: None (occurrence: None)
  Receive Date: 20090916
  Receipt Date: 20090909
  Transmission Date: 20100115
  Serious: Yes (Hospitalization, Other)
  Sender: FDA-Public Use
  Company Number: US-ELI_LILLY_AND_COMPANY-US200905003828

PATIENT
  Sex: Female

DRUGS (12)
  1. BYETTA [Suspect]
     Indication: TYPE 2 DIABETES MELLITUS
     Dosage: 5 UG, 2/D
     Route: 058
     Dates: start: 20060523, end: 20060101
  2. BYETTA [Suspect]
     Dosage: 10 UG, 2/D
     Route: 058
     Dates: end: 20060801
  3. BYETTA [Suspect]
     Dosage: 5 UG, 2/D
     Route: 058
     Dates: start: 20080703, end: 20080101
  4. BYETTA [Suspect]
     Dosage: 10 UG, 2/D
     Route: 058
  5. METFORMIN HCL [Concomitant]
     Indication: TYPE 2 DIABETES MELLITUS
     Dosage: 1000 MG, 2/D
     Route: 048
  6. GLIMEPIRIDE [Concomitant]
     Indication: TYPE 2 DIABETES MELLITUS
     Dosage: 4 MG, 2/D
     Route: 048
     Dates: start: 20061101
  7. LOTREL [Concomitant]
     Indication: HYPERTENSION
     Dosage: UNK, 2/D
     Route: 048
  8. PLAVIX [Concomitant]
     Indication: CORONARY ARTERY DISEASE
     Dosage: 75 MG, DAILY (1/D)
     Route: 048
     Dates: start: 20071001
  9. ASPIRIN [Concomitant]
     Dosage: 81 MG, DAILY (1/D)
     Route: 048
  10. DIOVAN HCT [Concomitant]
     Indication: HYPERTENSION
     Route: 048
  11. ZOCOR [Concomitant]
     Indication: HYPERLIPIDAEMIA
     Dosage: 80 MG, DAILY (1/D)
     Route: 048
  12. METOPROLOL TARTRATE [Concomitant]
     Indication: CORONARY ARTERY DISEASE
     Route: 048
     Dates: start: 20091030

REACTIONS (11)
  - BARRETT'S OESOPHAGUS [None]
  - DIARRHOEA [None]
  - DYSPNOEA [None]
  - EROSIVE OESOPHAGITIS [None]
  - GASTRIC ULCER [None]
  - GASTROOESOPHAGEAL REFLUX DISEASE [None]
  - HELICOBACTER PYLORI IDENTIFICATION TEST POSITIVE [None]
  - MALAISE [None]
  - NAUSEA [None]
  - THYROID DISORDER [None]
  - VOMITING [None]
